FAERS Safety Report 4791969-4 (Version None)
Quarter: 2005Q4

REPORT INFORMATION
  Report Type: 
  Country: None (occurrence: None)
  Receive Date: 20051005
  Receipt Date: 20050919
  Transmission Date: 20060501
  Serious: Yes (Death)
  Sender: FDA-Public Use
  Company Number: DSA_70823_2005

PATIENT
  Age: 52 Year

DRUGS (2)
  1. METHADONE [Suspect]
     Dosage: DF UNK
  2. INSULIN [Suspect]
     Dosage: DF UNK

REACTIONS (2)
  - COMPLETED SUICIDE [None]
  - MULTIPLE DRUG OVERDOSE [None]
